FAERS Safety Report 12091880 (Version 1)
Quarter: 2016Q1

REPORT INFORMATION
  Report Type: Spontaneous
  Country: US (occurrence: US)
  Receive Date: 20160219
  Receipt Date: 20160219
  Transmission Date: 20160526
  Serious: No
  Sender: FDA-Public Use
  Company Number: US-BIOGEN-2016BI00189405

PATIENT
  Sex: Female

DRUGS (1)
  1. AVONEX [Suspect]
     Active Substance: INTERFERON BETA-1A
     Indication: MULTIPLE SCLEROSIS
     Route: 065
     Dates: start: 20121201, end: 20141214

REACTIONS (10)
  - Malaise [Unknown]
  - Alopecia [Unknown]
  - Adverse reaction [Unknown]
  - Fall [Recovered/Resolved]
  - Hypertension [Unknown]
  - Dysphemia [Unknown]
  - Nerve compression [Unknown]
  - Carpal tunnel syndrome [Unknown]
  - Influenza like illness [Unknown]
  - Headache [Unknown]
